FAERS Safety Report 12048097 (Version 1)
Quarter: 2016Q1

REPORT INFORMATION
  Report Type: Spontaneous
  Country: DK (occurrence: DK)
  Receive Date: 20160208
  Receipt Date: 20160208
  Transmission Date: 20160526
  Serious: Yes (Other)
  Sender: FDA-Public Use
  Company Number: DK-GILEAD-2016-0195189

PATIENT
  Age: 59 Year
  Sex: Male

DRUGS (3)
  1. SOVALDI [Suspect]
     Active Substance: SOFOSBUVIR
     Indication: CHRONIC HEPATITIS C
     Dosage: 400 MG, QD
     Route: 048
     Dates: start: 20141125, end: 20150512
  2. DAKLINZA [Suspect]
     Active Substance: DACLATASVIR
     Indication: CHRONIC HEPATITIS C
     Dosage: 60 MG, QD
     Route: 048
     Dates: start: 20141125, end: 20150512
  3. KODEIN ^ALTERNOVA^ [Concomitant]
     Indication: PAIN
     Dosage: UNK
     Route: 048

REACTIONS (11)
  - Pain [Unknown]
  - Proctalgia [Unknown]
  - Headache [Recovered/Resolved]
  - Anal pruritus [Unknown]
  - Myalgia [Unknown]
  - Bowel movement irregularity [Unknown]
  - Constipation [Unknown]
  - Diarrhoea [Unknown]
  - Anal haemorrhage [Unknown]
  - Arthralgia [Unknown]
  - Pruritus generalised [Unknown]

NARRATIVE: CASE EVENT DATE: 201411
